FAERS Safety Report 4360120-7 (Version None)
Quarter: 2004Q2

REPORT INFORMATION
  Report Type: 
  Country: None (occurrence: None)
  Receive Date: 20040514
  Receipt Date: 20040503
  Transmission Date: 20050107
  Serious: Yes (Life-Threatening)
  Sender: FDA-Public Use
  Company Number: 8006267

PATIENT
  Age: 21 Year
  Sex: Male
  Weight: 45 kg

DRUGS (3)
  1. KEPPRA [Suspect]
     Indication: MYOCLONUS
     Dosage: 750 MG
     Dates: start: 20040424
  2. KEPPRA [Suspect]
     Indication: STATUS EPILEPTICUS
     Dosage: 750 MG
     Dates: start: 20040424
  3. GARDENAL [Concomitant]

REACTIONS (4)
  - DIARRHOEA [None]
  - HYPOTENSION [None]
  - PYREXIA [None]
  - TACHYCARDIA [None]
